FAERS Safety Report 5324376-6 (Version None)
Quarter: 2007Q2

REPORT INFORMATION
  Report Type: 
  Country: None (occurrence: None)
  Receive Date: 20070514
  Receipt Date: 20070502
  Transmission Date: 20071010
  Serious: Yes (Death, Other)
  Sender: FDA-Public Use
  Company Number: JP-PFIZER INC-2007035215

PATIENT
  Age: 50 Year
  Sex: Male
  Weight: 52 kg

DRUGS (4)
  1. VFEND [Suspect]
     Indication: BRONCHOPULMONARY ASPERGILLOSIS
     Route: 048
     Dates: start: 20061025, end: 20061214
  2. MICAFUNGIN [Concomitant]
     Route: 042
     Dates: start: 20060914, end: 20061024
  3. FUNGIZONE [Concomitant]
     Indication: INFECTION
     Route: 042
     Dates: start: 20060920, end: 20061027
  4. BAKTAR [Concomitant]
     Route: 048

REACTIONS (3)
  - DEATH [None]
  - HEPATIC FUNCTION ABNORMAL [None]
  - RENAL IMPAIRMENT [None]
